FAERS Safety Report 18253384 (Version 3)
Quarter: 2021Q4

REPORT INFORMATION
  Report Type: Spontaneous
  Country: ZA (occurrence: ZA)
  Receive Date: 20200910
  Receipt Date: 20211122
  Transmission Date: 20220303
  Serious: Yes (Death, Hospitalization)
  Sender: FDA-Public Use
  Company Number: ZA-PFIZER INC-2020349142

PATIENT
  Age: 46 Year
  Sex: Female
  Weight: 101 kg

DRUGS (23)
  1. LORBRENA [Suspect]
     Active Substance: LORLATINIB
     Indication: Lung adenocarcinoma
     Dosage: 100 MG, DAILY
     Route: 048
     Dates: start: 20191115
  2. LORBRENA [Suspect]
     Active Substance: LORLATINIB
     Dosage: 100 MG, DAILY
     Route: 048
     Dates: end: 20211101
  3. PANTOPRAZOLE SODIUM [Concomitant]
     Active Substance: PANTOPRAZOLE SODIUM
     Indication: Gastritis
     Dosage: 40 MG, DAILY
     Route: 048
  4. NIFEDIPINE [Concomitant]
     Active Substance: NIFEDIPINE
     Indication: Hypertension
     Dosage: 20 MG, 2X/DAY
     Route: 048
  5. VALPROATE SODIUM [Concomitant]
     Active Substance: VALPROATE SODIUM
     Indication: Metastases to central nervous system
     Dosage: 400 MG, 2X/DAY
     Route: 048
  6. VALPROATE SODIUM [Concomitant]
     Active Substance: VALPROATE SODIUM
     Indication: Epilepsy
     Dosage: 200 MG, 2X/DAY
  7. KEPPRA [Concomitant]
     Active Substance: LEVETIRACETAM
     Indication: Metastases to central nervous system
     Dosage: 500 MG, 2X/DAY
     Route: 048
  8. KEPPRA [Concomitant]
     Active Substance: LEVETIRACETAM
     Indication: Epilepsy
     Dosage: 50 MG, 2X/DAY
  9. FLUOXETINE HYDROCHLORIDE [Concomitant]
     Active Substance: FLUOXETINE HYDROCHLORIDE
     Indication: Depression
     Dosage: 20 MG, DAILY
     Route: 048
  10. LIOTHYRONINE SODIUM [Concomitant]
     Active Substance: LIOTHYRONINE SODIUM
     Indication: Hypothyroidism
     Dosage: 10 UG, DAILY
     Route: 048
  11. EUTHYROX [Concomitant]
     Active Substance: LEVOTHYROXINE SODIUM
     Indication: Hypothyroidism
     Dosage: 150 UG, DAILY
     Route: 048
  12. EUTHYROX [Concomitant]
     Active Substance: LEVOTHYROXINE SODIUM
     Dosage: 100 UG, DAILY
  13. ENOXAPARIN SODIUM [Concomitant]
     Active Substance: ENOXAPARIN SODIUM
     Indication: Pulmonary embolism
     Dosage: 80 MG, 2X/DAY
     Route: 058
  14. ENOXAPARIN SODIUM [Concomitant]
     Active Substance: ENOXAPARIN SODIUM
     Dosage: 80 MG, DAILY
     Route: 058
  15. MEDROL [Concomitant]
     Active Substance: METHYLPREDNISOLONE
     Indication: Metastases to central nervous system
     Dosage: 4 MG, 2X/DAY
     Route: 048
  16. MEDROL [Concomitant]
     Active Substance: METHYLPREDNISOLONE
     Dosage: 4 MG, 2X/DAY
  17. CRESTOR [Concomitant]
     Active Substance: ROSUVASTATIN CALCIUM
     Indication: Dyslipidaemia
     Dosage: 40 MG, DAILY
     Route: 048
  18. VASOLIP [Concomitant]
     Indication: Dyslipidaemia
     Dosage: 400 MG, DAILY
  19. COENZYME Q10 PLUS [Concomitant]
     Indication: Dyslipidaemia
     Dosage: 10 MG, 2X/DAY
     Route: 048
  20. PERINDOPRIL [Concomitant]
     Active Substance: PERINDOPRIL
     Indication: Hypertension
     Dosage: 40 MG, DAILY
  21. VENLAFAXINE [Concomitant]
     Active Substance: VENLAFAXINE HYDROCHLORIDE
     Indication: Depression
     Dosage: 75 MG, DAILY
  22. BEZAFIBRATE [Concomitant]
     Active Substance: BEZAFIBRATE
     Indication: Dyslipidaemia
     Dosage: 400 MG, DAILY
  23. NEUROBION [CYANOCOBALAMIN;PYRIDOXINE;THIAMINE] [Concomitant]
     Indication: Neuropathy peripheral
     Dosage: 1 DF, DAILY

REACTIONS (3)
  - Syncope [Fatal]
  - Neoplasm progression [Fatal]
  - Cystitis [Recovered/Resolved]

NARRATIVE: CASE EVENT DATE: 20200827
